FAERS Safety Report 21928390 (Version 1)
Quarter: 2023Q1

REPORT INFORMATION
  Report Type: Spontaneous
  Country: US (occurrence: US)
  Receive Date: 20230130
  Receipt Date: 20230130
  Transmission Date: 20230418
  Serious: Yes (Disabling, Other)
  Sender: FDA-Public Use
  Company Number: US-JNJFOC-20230143043

PATIENT
  Sex: Female

DRUGS (3)
  1. INVEGA SUSTENNA [Suspect]
     Active Substance: PALIPERIDONE PALMITATE
     Indication: Product used for unknown indication
     Route: 030
  2. INVEGA SUSTENNA [Suspect]
     Active Substance: PALIPERIDONE PALMITATE
  3. INVEGA SUSTENNA [Suspect]
     Active Substance: PALIPERIDONE PALMITATE

REACTIONS (11)
  - Disability [Unknown]
  - Immobile [Unknown]
  - Abnormal behaviour [Unknown]
  - Confusional state [Unknown]
  - Migraine [Unknown]
  - Menstruation irregular [Unknown]
  - Cardiac disorder [Unknown]
  - Toxicity to various agents [Unknown]
  - Adverse event [Unknown]
  - Motor dysfunction [Unknown]
  - Skin odour abnormal [Unknown]
